FAERS Safety Report 11688358 (Version 1)
Quarter: 2015Q4

REPORT INFORMATION
  Report Type: Spontaneous
  Country: US (occurrence: US)
  Receive Date: 20151031
  Receipt Date: 20151031
  Transmission Date: 20160304
  Serious: No
  Sender: FDA-Public Use
  Company Number: PHEH2015US022018

PATIENT
  Age: 75 Year
  Sex: Female

DRUGS (1)
  1. JADENU [Suspect]
     Active Substance: DEFERASIROX
     Indication: MYELOFIBROSIS
     Dosage: 14 MG/KG, QD
     Route: 048
     Dates: start: 20150823, end: 20150824

REACTIONS (7)
  - Paraesthesia oral [Unknown]
  - Pruritus [Unknown]
  - Joint swelling [Unknown]
  - Urticaria [Recovered/Resolved]
  - Nausea [Unknown]
  - Peripheral swelling [Unknown]
  - Rash [Recovered/Resolved]

NARRATIVE: CASE EVENT DATE: 20150823
